FAERS Safety Report 22081406 (Version 1)
Quarter: 2023Q1

REPORT INFORMATION
  Report Type: Spontaneous
  Country: CN (occurrence: CN)
  Receive Date: 20230309
  Receipt Date: 20230309
  Transmission Date: 20230418
  Serious: Yes (Other)
  Sender: FDA-Public Use
  Company Number: None

PATIENT
  Age: 25 Year
  Sex: Male
  Weight: 62 kg

DRUGS (9)
  1. CYCLOPHOSPHAMIDE [Suspect]
     Active Substance: CYCLOPHOSPHAMIDE
     Indication: Burkitt^s lymphoma stage IV
     Dosage: 0.4G, Q12H FOR 2 HOUR, DILUTED WITH 100 ML OF 0.9% SODIUM CHLORIDE
     Route: 041
     Dates: start: 20230211, end: 20230214
  2. SODIUM CHLORIDE [Suspect]
     Active Substance: SODIUM CHLORIDE
     Indication: Medication dilution
     Dosage: 0.9% 100 ML, Q12H FOR 2 HOUR, USED TO DILUTE 0.4 G CYCLOPHOSPHAMIDE
     Route: 041
     Dates: start: 20230211, end: 20230214
  3. SODIUM CHLORIDE [Suspect]
     Active Substance: SODIUM CHLORIDE
     Dosage: 0.9% 50 ML, QD, FOR MORE THAN 4.2 HOUR USED TO DILUTE 70 MG DOXORUBICIN HYDROCHLORIDE
     Route: 041
     Dates: start: 20230214, end: 20230215
  4. SODIUM CHLORIDE [Suspect]
     Active Substance: SODIUM CHLORIDE
     Dosage: 0.9% 40 ML, QD, 2ML/H USED TO DILUTE 900 MG MESNA: ROUTE: INTRAPUMP INJECTION
     Route: 050
     Dates: start: 20230211, end: 20230214
  5. SODIUM CHLORIDE [Suspect]
     Active Substance: SODIUM CHLORIDE
     Dosage: 0.9% 100 ML, QD, USED TO DILUTE 2 MG VINCRISTINE SULPHATE
     Route: 041
     Dates: start: 20230214, end: 20230215
  6. DOXORUBICIN HYDROCHLORIDE [Suspect]
     Active Substance: DOXORUBICIN HYDROCHLORIDE
     Indication: Burkitt^s lymphoma stage IV
     Dosage: 70 MG, QD, FOR MORE THAN 4.2 HOUR DILUTED WITH 50 ML OF 0.9% SODIUM CHLORIDE
     Route: 041
     Dates: start: 20230214, end: 20230215
  7. VINCRISTINE [Suspect]
     Active Substance: VINCRISTINE
     Indication: Burkitt^s lymphoma stage IV
     Dosage: 2 MG, QD, DILUTED WITH 100 ML 0.9% SODIUM CHLORIDE
     Route: 041
     Dates: start: 20230214, end: 20230215
  8. MESNA [Suspect]
     Active Substance: MESNA
     Indication: Burkitt^s lymphoma stage IV
     Dosage: 900 MG, QD, DILUTED WITH 40 ML 0.9% SODIUM CHLORIDE (2ML/H); ROUTE: INTRAPUMP INJECTION
     Route: 050
     Dates: start: 20230211, end: 20230214
  9. DEXAMETHASONE ACETATE [Concomitant]
     Active Substance: DEXAMETHASONE ACETATE
     Indication: Burkitt^s lymphoma stage IV
     Dosage: 20 MG, BID
     Route: 048
     Dates: start: 20230211, end: 20230215

REACTIONS (2)
  - Transaminases increased [Recovering/Resolving]
  - Hepatic function abnormal [Unknown]

NARRATIVE: CASE EVENT DATE: 20230221
